FAERS Safety Report 22930964 (Version 8)
Quarter: 2024Q3

REPORT INFORMATION
  Report Type: Spontaneous
  Country: IL (occurrence: IL)
  Receive Date: 20230911
  Receipt Date: 20240718
  Transmission Date: 20241017
  Serious: Yes (Death, Life-Threatening, Hospitalization, Disabling, Other)
  Sender: BRISTOL MYERS SQUIBB
  Company Number: IL-BRISTOL-MYERS SQUIBB COMPANY-2023-123536

PATIENT
  Age: 85 Year
  Sex: Male
  Weight: 73 kg

DRUGS (20)
  1. AZACITIDINE [Suspect]
     Active Substance: AZACITIDINE
     Indication: Acute myeloid leukaemia
     Dosage: DAYS 1-7 OF EACH 28 DAY CYCLE
     Route: 058
     Dates: start: 20180506, end: 20230814
  2. AZACITIDINE [Suspect]
     Active Substance: AZACITIDINE
     Dosage: DAYS 1-7 OF EACH 28 DAY CYCLE
     Route: 058
     Dates: start: 20231015, end: 20231116
  3. VENETOCLAX [Suspect]
     Active Substance: VENETOCLAX
     Indication: Acute myeloid leukaemia
     Dosage: DAYS 1-28 CYCLE = 28 DAYS, EVERY 1 DAYS
     Route: 048
     Dates: start: 20180506, end: 20230821
  4. VENETOCLAX [Suspect]
     Active Substance: VENETOCLAX
     Dosage: DAYS 1-28 CYCLE = 28 DAYS, EVERY 1 DAYS
     Route: 048
     Dates: start: 20231015, end: 20231125
  5. ENOXAPARIN SODIUM [Concomitant]
     Active Substance: ENOXAPARIN SODIUM
     Indication: Thrombosis prophylaxis
     Dosage: AS NECESSARY
     Dates: start: 20190617
  6. VITAL [MINERALS NOS;VITAMINS NOS] [Concomitant]
     Indication: Nutritional supplementation
     Dosage: AS NECESSARY
     Dates: start: 20181106
  7. ENSURE [Concomitant]
     Active Substance: AMINO ACIDS\DEXTROSE\ELECTROLYTES NOS\SOYBEAN OIL\VITAMINS
     Indication: Nutritional supplementation
     Dosage: AS NECESSARY
     Dates: start: 20180628
  8. BISACODYL [Concomitant]
     Active Substance: BISACODYL
     Indication: Constipation prophylaxis
     Dates: start: 20181205
  9. VITAMIN D3 [Concomitant]
     Active Substance: CHOLECALCIFEROL
     Indication: Vitamin supplementation
     Dates: start: 201210
  10. COLCHICINE [Concomitant]
     Active Substance: COLCHICINE
     Indication: Gout
     Dates: start: 20180916
  11. TESTOSTERONE [Concomitant]
     Active Substance: TESTOSTERONE
     Indication: Hypogonadism male
     Dates: start: 20181028
  12. BEVITEX [CYANOCOBALAMIN] [Concomitant]
     Indication: Anaemia prophylaxis
     Dates: start: 2014
  13. TESTOSTERONE ENANTHATE [Concomitant]
     Active Substance: TESTOSTERONE ENANTHATE
     Indication: Hypogonadism male
     Dates: start: 2011
  14. PILOCARPINE [Concomitant]
     Active Substance: PILOCARPINE
     Indication: Glaucoma
     Dosage: FREQUENCY: 2 / DAY
     Dates: start: 2007
  15. LERCANIDIPINE HYDROCHLORIDE [Concomitant]
     Active Substance: LERCANIDIPINE HYDROCHLORIDE
     Indication: Hypertension
     Dosage: FREQUENCY: 2 / DAY
     Dates: start: 2000
  16. COVID-19 VACCINE [Concomitant]
     Indication: COVID-19 prophylaxis
     Dates: start: 20210101, end: 20210101
  17. COVID-19 VACCINE [Concomitant]
     Dates: start: 20210122, end: 20210122
  18. COVID-19 VACCINE [Concomitant]
     Dates: start: 20220407, end: 20220407
  19. PFIZER-BIONTECH COVID-19 VACCINE [Concomitant]
     Active Substance: TOZINAMERAN
     Indication: COVID-19 prophylaxis
     Dates: start: 20210807, end: 20210807
  20. ELIQUIS [Concomitant]
     Active Substance: APIXABAN
     Indication: Embolism
     Dates: start: 20231120

REACTIONS (10)
  - Fall [Unknown]
  - Traumatic fracture [Recovered/Resolved]
  - Arthralgia [Not Recovered/Not Resolved]
  - Sepsis [Fatal]
  - Deep vein thrombosis [Unknown]
  - Portal vein occlusion [Unknown]
  - Fluid retention [Unknown]
  - Splenic vein occlusion [Unknown]
  - COVID-19 [Unknown]
  - Escherichia bacteraemia [Unknown]

NARRATIVE: CASE EVENT DATE: 20230827
